FAERS Safety Report 17576891 (Version 1)
Quarter: 2020Q1

REPORT INFORMATION
  Report Type: Spontaneous
  Country: DE (occurrence: DE)
  Receive Date: 20200324
  Receipt Date: 20200324
  Transmission Date: 20200409
  Serious: Yes (Other)
  Sender: FDA-Public Use
  Company Number: DE-MYLANLABS-2020M1029524

PATIENT
  Sex: Female

DRUGS (3)
  1. ORFIRIL [Suspect]
     Active Substance: VALPROATE SODIUM
     Indication: SEIZURE
     Dosage: ALREADY TAKEN FOR MANY YEARS
  2. LAMOTRIGINE. [Suspect]
     Active Substance: LAMOTRIGINE
     Indication: PRODUCT USED FOR UNKNOWN INDICATION
     Dosage: UNK
  3. ORFIRIL [Suspect]
     Active Substance: VALPROATE SODIUM
     Dosage: 600 MG IN THE MORNING, 900 MG IN THE EVENING

REACTIONS (4)
  - Seizure [Unknown]
  - Anticonvulsant drug level decreased [Unknown]
  - Drug hypersensitivity [Unknown]
  - Product physical issue [Unknown]
